FAERS Safety Report 5616555-5 (Version None)
Quarter: 2008Q1

REPORT INFORMATION
  Report Type: 
  Country: None (occurrence: None)
  Receive Date: 20080207
  Receipt Date: 20070613
  Transmission Date: 20080703
  Serious: No
  Sender: FDA-Public Use
  Company Number: A0656987A

PATIENT
  Age: 23 Year
  Sex: Male

DRUGS (1)
  1. PAXIL CR [Suspect]
     Indication: DEPRESSION
     Dosage: 20MG UNKNOWN
     Route: 048

REACTIONS (5)
  - BRADYPHRENIA [None]
  - DEPRESSION [None]
  - EDUCATIONAL PROBLEM [None]
  - FEELING ABNORMAL [None]
  - NERVOUSNESS [None]
